FAERS Safety Report 6609439-7 (Version None)
Quarter: 2010Q1

REPORT INFORMATION
  Report Type: 
  Country: None (occurrence: None)
  Receive Date: 20100224
  Receipt Date: 20100209
  Transmission Date: 20100710
  Serious: Yes (Death, Hospitalization)
  Sender: FDA-Public Use
  Company Number: 2010PV000003

PATIENT
  Age: 42 Year
  Sex: Female

DRUGS (2)
  1. DEPOCYT [Suspect]
     Indication: METASTASES TO MENINGES
     Dosage: INTH
     Route: 037
     Dates: start: 20070301, end: 20080701
  2. TEMOZOLOMIDE [Concomitant]

REACTIONS (6)
  - BREAST CANCER FEMALE [None]
  - DIARRHOEA [None]
  - MALIGNANT NEOPLASM PROGRESSION [None]
  - METASTASES TO MENINGES [None]
  - SEPSIS [None]
  - SKIN ULCER [None]
